FAERS Safety Report 26121064 (Version 1)
Quarter: 2025Q4

REPORT INFORMATION
  Report Type: Spontaneous
  Country: US (occurrence: None)
  Receive Date: 20251203
  Receipt Date: 20251203
  Transmission Date: 20260117
  Serious: Yes (Other)
  Sender: FDA-CTU
  Company Number: None

PATIENT
  Sex: Female

DRUGS (11)
  1. TEZSPIRE [Suspect]
     Active Substance: TEZEPELUMAB-EKKO
     Indication: Asthma
     Dosage: OTHER QUANTITY : 1.91 ML UNDER THE SKIN;?OTHER FREQUENCY : EVERY 28 DAYS;?
     Route: 058
     Dates: start: 20250207
  2. AZELASTINE [Concomitant]
     Active Substance: AZELASTINE
  3. CLARITIN [Concomitant]
     Active Substance: LORATADINE
  4. CYCLOBENZAPRINE [Concomitant]
     Active Substance: CYCLOBENZAPRINE
  5. FLONASE [Concomitant]
     Active Substance: FLUTICASONE PROPIONATE
  6. FOLIC ACID [Concomitant]
     Active Substance: FOLIC ACID
  7. INCRUSE ELLIPTA [Concomitant]
     Active Substance: UMECLIDINIUM BROMIDE
  8. ALBUTEROL\IPRATROPIUM BROMIDE [Concomitant]
     Active Substance: ALBUTEROL\IPRATROPIUM BROMIDE
  9. LISINOPRIL [Concomitant]
     Active Substance: LISINOPRIL
  10. METHOTREXATE [Concomitant]
     Active Substance: METHOTREXATE
  11. PEPCID AC [Concomitant]
     Active Substance: FAMOTIDINE

REACTIONS (3)
  - Sinusitis [None]
  - Asthma [None]
  - Quality of life decreased [None]
